FAERS Safety Report 4804397-X (Version None)
Quarter: 2005Q4

REPORT INFORMATION
  Report Type: 
  Country: None (occurrence: None)
  Receive Date: 20051020
  Receipt Date: 20050906
  Transmission Date: 20060501
  Serious: Yes (Life-Threatening)
  Sender: FDA-Public Use
  Company Number: US-GLAXOSMITHKLINE-A0573117A

PATIENT
  Age: 54 Year
  Sex: Male

DRUGS (3)
  1. RETROVIR [Suspect]
     Indication: HIV INFECTION
     Dosage: 300MG TWICE PER DAY
     Route: 048
     Dates: start: 20050902, end: 20050905
  2. ZIAGEN [Suspect]
     Indication: HIV INFECTION
     Route: 065
  3. EMTRIVA [Concomitant]

REACTIONS (6)
  - ADVERSE DRUG REACTION [None]
  - DIZZINESS [None]
  - HEADACHE [None]
  - MUSCLE SPASMS [None]
  - NAUSEA [None]
  - VOMITING [None]
